FAERS Safety Report 5249095-6 (Version None)
Quarter: 2007Q1

REPORT INFORMATION
  Report Type: 
  Country: None (occurrence: None)
  Receive Date: 20070228
  Receipt Date: 20060804
  Transmission Date: 20070707
  Serious: No
  Sender: FDA-Public Use
  Company Number: US-GLAXOSMITHKLINE-A0615290A

PATIENT
  Age: 82 Year
  Sex: Male

DRUGS (4)
  1. VALTREX [Suspect]
     Route: 048
     Dates: start: 20060701, end: 20060701
  2. CHLORAMBUCIL [Suspect]
  3. PREDNISONE [Suspect]
     Route: 065
  4. NO CONCURRENT MEDICATION [Concomitant]

REACTIONS (1)
  - WHITE BLOOD CELL COUNT DECREASED [None]
